FAERS Safety Report 8985361 (Version 2)
Quarter: 2013Q2

REPORT INFORMATION
  Report Type: Spontaneous
  Country: BR (occurrence: BR)
  Receive Date: 20121226
  Receipt Date: 20130401
  Transmission Date: 20140414
  Serious: Yes (Other)
  Sender: FDA-Public Use
  Company Number: BR-BRISTOL-MYERS SQUIBB COMPANY-17222589

PATIENT
  Age: 60 Year
  Sex: Female
  Weight: 62 kg

DRUGS (1)
  1. APROZIDE [Suspect]
     Indication: ARRHYTHMIA
     Dosage: 1 DF = 150 MG+12.5 MG COATED TABLET
     Dates: start: 1997

REACTIONS (4)
  - Upper limb fracture [Recovered/Resolved]
  - Fall [Unknown]
  - Memory impairment [Recovered/Resolved]
  - Off label use [Unknown]
